FAERS Safety Report 7654949-7 (Version None)
Quarter: 2011Q3

REPORT INFORMATION
  Report Type: 
  Country: None (occurrence: None)
  Receive Date: 20110804
  Receipt Date: 20110720
  Transmission Date: 20111222
  Serious: Yes (Hospitalization)
  Sender: FDA-Public Use
  Company Number: JP-BAYER-2011-051950

PATIENT
  Age: 67 Year
  Sex: Male

DRUGS (6)
  1. NEXAVAR [Suspect]
     Dosage: DOSE PER TREATMENT DAY 200MG
     Route: 048
     Dates: start: 20110621, end: 20110711
  2. LANSOPRAZOLE [Concomitant]
     Dosage: DOSE PER TREATMENT DAY 30 MG
     Route: 048
     Dates: start: 20110108
  3. TAMSULOSIN HCL [Concomitant]
     Indication: BENIGN PROSTATIC HYPERPLASIA
     Dosage: DOSE PER TREATMENT DAY 0.200MG
     Route: 048
     Dates: start: 20110423
  4. NEXAVAR [Suspect]
     Indication: HEPATIC NEOPLASM MALIGNANT
     Dosage: DOSE PER TREATMENT DAY 800 MG
     Route: 048
     Dates: start: 20110603, end: 20110608
  5. NEXAVAR [Suspect]
     Dosage: DOSE PER TREATMENT DAY 400MG
     Route: 048
     Dates: start: 20110615, end: 20110616
  6. NEXAVAR [Suspect]
     Dosage: DOSE PER TREATMENT DAY 400MG
     Route: 048
     Dates: start: 20110712

REACTIONS (3)
  - HEPATIC ENCEPHALOPATHY [None]
  - DISORIENTATION [None]
  - DYSARTHRIA [None]
